FAERS Safety Report 7273571-8 (Version None)
Quarter: 2011Q1

REPORT INFORMATION
  Report Type: 
  Country: None (occurrence: None)
  Receive Date: 20110203
  Receipt Date: 20101012
  Transmission Date: 20110831
  Serious: Yes (Hospitalization)
  Sender: FDA-Public Use
  Company Number: US-ABBOTT-10P-163-0677434-00

PATIENT
  Sex: Male
  Weight: 68.1 kg

DRUGS (9)
  1. CELEXA [Concomitant]
     Indication: DEPRESSION
  2. KLONOPIN [Concomitant]
     Indication: MUSCLE RELAXANT THERAPY
  3. SYNTHROID [Suspect]
     Indication: HYPOTHYROIDISM
     Dates: start: 20000101
  4. MEADOW ROOT EXTRACT [Concomitant]
     Indication: PROSTATIC DISORDER
  5. LOVAZA [Concomitant]
     Indication: SUPPLEMENTATION THERAPY
  6. VALERIAN ROOT [Concomitant]
     Indication: INSOMNIA
  7. RESBERATROL [Concomitant]
     Indication: CARDIOVASCULAR DISORDER
  8. AVODART [Concomitant]
     Indication: BENIGN PROSTATIC HYPERPLASIA
  9. SAW PALMETTO [Concomitant]
     Indication: PROSTATIC DISORDER

REACTIONS (2)
  - DEPRESSION [None]
  - BLOOD THYROID STIMULATING HORMONE INCREASED [None]
